FAERS Safety Report 17256305 (Version 2)
Quarter: 2020Q1

REPORT INFORMATION
  Report Type: Spontaneous
  Country: GB (occurrence: GB)
  Receive Date: 20200110
  Receipt Date: 20200219
  Transmission Date: 20200409
  Serious: Yes (Life-Threatening, Hospitalization, Other)
  Sender: FDA-Public Use
  Company Number: GB-AUROBINDO-AUR-APL-2012-04733

PATIENT
  Age: 72 Year

DRUGS (12)
  1. CEFTRIAXONE. [Suspect]
     Active Substance: CEFTRIAXONE
     Dosage: 1 GRAM, ONCE A DAY
     Route: 041
     Dates: start: 20110308, end: 20110803
  2. METRONIDAZOLE. [Suspect]
     Active Substance: METRONIDAZOLE
     Indication: PRODUCT USED FOR UNKNOWN INDICATION
     Dosage: 500 MG,3 TIMES A DAY,1500 MG,1 DAY
     Route: 041
     Dates: start: 20110308, end: 20110308
  3. ERYTHROMYCIN. [Suspect]
     Active Substance: ERYTHROMYCIN
     Indication: PRODUCT USED FOR UNKNOWN INDICATION
     Dosage: 125 MG,3 TIMES A DAY,375 MG,1 DAY
     Route: 042
     Dates: start: 20110319, end: 20110321
  4. FLUCLOXACILLIN CAPSULES BP 500 MG [Suspect]
     Active Substance: FLUCLOXACILLIN
     Indication: PRODUCT USED FOR UNKNOWN INDICATION
     Dosage: 500 MG,FOUR TIMES/DAY,
     Route: 048
     Dates: start: 20100908
  5. PIPERACILLIN AND TAZOBACTAM [Suspect]
     Active Substance: PIPERACILLIN SODIUM\TAZOBACTAM SODIUM
     Indication: PNEUMONIA
     Dosage: 4.5 G,3 TIMES A DAY,
     Route: 041
     Dates: start: 20110420, end: 20110425
  6. CO-AMOXICLAV [Suspect]
     Active Substance: AMOXICILLIN\CLAVULANATE POTASSIUM
     Indication: SEPSIS
     Dosage: 1.2 GRAM, 3 TIMES A DAY
     Route: 041
     Dates: start: 20110328, end: 20110403
  7. MEROPENEM POWDER FOR SOLUTION FOR INFUSION [Suspect]
     Active Substance: MEROPENEM
     Indication: PANCREATITIS NECROTISING
     Dosage: 1 G,3 TIMES A DAY,3 G,1 DAY
     Route: 041
     Dates: start: 20110309, end: 20110313
  8. CEFUROXIME. [Suspect]
     Active Substance: CEFUROXIME
     Indication: PRODUCT USED FOR UNKNOWN INDICATION
     Dosage: 1.5 G,TOTAL
     Route: 041
     Dates: start: 20110308, end: 20110308
  9. CEFUROXIME. [Suspect]
     Active Substance: CEFUROXIME
     Dosage: 1.5 G,TOTAL
     Route: 041
     Dates: start: 20110308, end: 20110803
  10. TRIMETHOPRIM TABLETS 200 MG [Suspect]
     Active Substance: TRIMETHOPRIM
     Indication: URINARY TRACT INFECTION
     Dosage: 200 MG,TWO TIMES A DAY,400
     Route: 048
     Dates: start: 20110305, end: 20110305
  11. TAZOBACTAM [Suspect]
     Active Substance: TAZOBACTAM
     Indication: PRODUCT USED FOR UNKNOWN INDICATION
     Dosage: UNK
     Route: 065
  12. CEFTRIAXONE. [Suspect]
     Active Substance: CEFTRIAXONE
     Indication: PANCREATITIS
     Dosage: 1 GRAM, ONCE A DAY
     Route: 041
     Dates: start: 20110308, end: 20110308

REACTIONS (1)
  - Clostridium test positive [Recovered/Resolved]

NARRATIVE: CASE EVENT DATE: 20110421
